FAERS Safety Report 21172514 (Version 1)
Quarter: 2022Q3

REPORT INFORMATION
  Report Type: Spontaneous
  Country: US (occurrence: None)
  Receive Date: 20220803
  Receipt Date: 20220803
  Transmission Date: 20221027
  Serious: No
  Sender: FDA-Public Use
  Company Number: None

PATIENT
  Age: 53 Year
  Sex: Female
  Weight: 90 kg

DRUGS (5)
  1. MONTELUKAST SODIUM [Suspect]
     Active Substance: MONTELUKAST SODIUM
     Indication: Multiple allergies
     Dosage: OTHER QUANTITY : 1 TABLET(S);?FREQUENCY : AT BEDTIME;?
     Route: 048
     Dates: start: 20220728, end: 20220729
  2. ALBUTEROL [Concomitant]
  3. EPIPEN [Concomitant]
     Active Substance: EPINEPHRINE
  4. FLUOCINONIDE [Concomitant]
     Active Substance: FLUOCINONIDE
  5. MULTI-VITAMIN [Concomitant]

REACTIONS (4)
  - Pyrexia [None]
  - Somnolence [None]
  - Hypersomnia [None]
  - Hot flush [None]

NARRATIVE: CASE EVENT DATE: 20220730
